FAERS Safety Report 8474883-2 (Version None)
Quarter: 2012Q2

REPORT INFORMATION
  Report Type: 
  Country: None (occurrence: None)
  Receive Date: 20120628
  Receipt Date: 20120621
  Transmission Date: 20120825
  Serious: Yes (Other)
  Sender: FDA-Public Use
  Company Number: US-BRISTOL-MYERS SQUIBB COMPANY-16703670

PATIENT
  Sex: Male

DRUGS (1)
  1. SPRYCEL [Suspect]

REACTIONS (3)
  - HAEMORRHAGE [None]
  - PROTHROMBIN TIME ABNORMAL [None]
  - ACTIVATED PARTIAL THROMBOPLASTIN TIME ABNORMAL [None]
